FAERS Safety Report 5823269-5 (Version None)
Quarter: 2008Q3

REPORT INFORMATION
  Report Type: 
  Country: None (occurrence: None)
  Receive Date: 20080724
  Receipt Date: 20080724
  Transmission Date: 20090109
  Serious: Yes (Hospitalization)
  Sender: FDA-Public Use
  Company Number: None

PATIENT
  Sex: Female
  Weight: 62.3 kg

DRUGS (12)
  1. CARBOPLATIN [Suspect]
     Dosage: 622 MG
     Dates: start: 20080625, end: 20080625
  2. TAXOTERE [Suspect]
     Dosage: 119 MG
     Dates: start: 20080625, end: 20080625
  3. TAXOL [Suspect]
     Dosage: 95.4 MG
     Dates: start: 20080625, end: 20080625
  4. BENADRYL [Concomitant]
  5. CALCIUM [Concomitant]
  6. COZAAR [Concomitant]
  7. DECADRON [Concomitant]
  8. EMEND [Concomitant]
  9. FAMOTIDINE [Concomitant]
  10. LORAZEPAM [Concomitant]
  11. VITAMEN C [Concomitant]
  12. ZOFRAN [Concomitant]

REACTIONS (7)
  - ANAEMIA [None]
  - BLOOD PRESSURE INCREASED [None]
  - CONSTIPATION [None]
  - DECREASED APPETITE [None]
  - LEUKOCYTOSIS [None]
  - NAUSEA [None]
  - WEIGHT DECREASED [None]
